FAERS Safety Report 10221302 (Version 3)
Quarter: 2014Q4

REPORT INFORMATION
  Report Type: Spontaneous
  Country: US (occurrence: None)
  Receive Date: 20140604
  Receipt Date: 20141031
  Transmission Date: 20150528
  Serious: Yes (Death)
  Sender: FDA-Public Use
  Company Number: 1713747-2014-99981

PATIENT
  Age: 57 Year
  Sex: Female
  Weight: 79.1 kg

DRUGS (6)
  1. FMS DIALYZER [Concomitant]
  2. GRANFLO [Concomitant]
  3. NATURALYTE [Concomitant]
     Active Substance: ACETIC ACID\SODIUM ACETATE
  4. 0.9% SODIUM CHLORIDE INJECTION, 1L [Suspect]
     Active Substance: SODIUM CHLORIDE
     Dosage: HEMODIALYSIS?
     Route: 010
     Dates: start: 20100628
  5. FMS BLOOD LINES [Concomitant]
  6. FMS HEMODIALYSIS SYSTEM [Concomitant]

REACTIONS (2)
  - Cardiac arrest [None]
  - Cardiovascular disorder [None]

NARRATIVE: CASE EVENT DATE: 20100628
